FAERS Safety Report 20844665 (Version 1)
Quarter: 2022Q2

REPORT INFORMATION
  Report Type: Spontaneous
  Country: US (occurrence: None)
  Receive Date: 20220517
  Receipt Date: 20220517
  Transmission Date: 20220720
  Serious: Yes (Death)
  Sender: FDA-Public Use
  Company Number: None

PATIENT
  Age: 69 Year
  Sex: Female

DRUGS (1)
  1. DEPO-MEDROL [Suspect]
     Active Substance: METHYLPREDNISOLONE ACETATE
     Indication: Analgesic therapy
     Dates: start: 20180502

REACTIONS (3)
  - Brain stem stroke [None]
  - Product use issue [None]
  - Blood pressure increased [None]

NARRATIVE: CASE EVENT DATE: 20180502
